FAERS Safety Report 6383672-4 (Version None)
Quarter: 2009Q3

REPORT INFORMATION
  Report Type: 
  Country: None (occurrence: None)
  Receive Date: 20090929
  Receipt Date: 20090929
  Transmission Date: 20100115
  Serious: Yes (Other)
  Sender: FDA-Public Use
  Company Number: None

PATIENT
  Age: 1 Year
  Sex: Male
  Weight: 9.5255 kg

DRUGS (1)
  1. TAMIFLU 25 MI CMPD-OSELTAMIVIR STONE [Suspect]
     Indication: INFLUENZA
     Dosage: 2.5ML BY MOUTH TWICE DAILY FOR TWICE DAILY PO
     Route: 048
     Dates: start: 20090925, end: 20090928

REACTIONS (5)
  - ABDOMINAL PAIN UPPER [None]
  - MIDDLE INSOMNIA [None]
  - RASH [None]
  - SCREAMING [None]
  - VOMITING [None]
